FAERS Safety Report 4373173-7 (Version None)
Quarter: 2004Q2

REPORT INFORMATION
  Report Type: 
  Country: None (occurrence: None)
  Receive Date: 20040603
  Receipt Date: 20040514
  Transmission Date: 20050107
  Serious: Yes (Death, Life-Threatening)
  Sender: FDA-Public Use
  Company Number: USA040464354

PATIENT
  Age: 62 Year
  Sex: Male
  Weight: 77 kg

DRUGS (4)
  1. ZYPREXA [Suspect]
     Indication: PSYCHOTIC DISORDER
     Dosage: 10 MG/1 AT BEDTIME
     Dates: start: 20031204, end: 20031205
  2. CAPOTEN [Concomitant]
  3. LEXAPRO [Concomitant]
  4. GEODON [Concomitant]

REACTIONS (14)
  - ARRHYTHMIA [None]
  - CARDIO-RESPIRATORY ARREST [None]
  - CIRCULATORY COLLAPSE [None]
  - CORONARY ARTERY OCCLUSION [None]
  - DIARRHOEA [None]
  - DRUG LEVEL ABOVE THERAPEUTIC [None]
  - DYSPNOEA [None]
  - HEART RATE DECREASED [None]
  - MEDIASTINAL HAEMORRHAGE [None]
  - PULMONARY HAEMORRHAGE [None]
  - REFUSAL OF TREATMENT BY PATIENT [None]
  - RIB FRACTURE [None]
  - TREMOR [None]
  - VENTRICULAR HYPERTROPHY [None]
